FAERS Safety Report 14535643 (Version 1)
Quarter: 2018Q1

REPORT INFORMATION
  Report Type: Spontaneous
  Country: US (occurrence: US)
  Receive Date: 20180214
  Receipt Date: 20180214
  Transmission Date: 20180509
  Serious: Yes (Disabling)
  Sender: FDA-Public Use
  Company Number: None

PATIENT
  Age: 39 Year
  Sex: Female
  Weight: 46.35 kg

DRUGS (3)
  1. CIPROFLOXACIN. [Suspect]
     Active Substance: CIPROFLOXACIN
     Indication: URINARY TRACT INFECTION
     Dosage: ?          QUANTITY:1 TABLET(S);?
     Route: 048
     Dates: start: 20171123, end: 20171126
  2. TYLENOL [Concomitant]
     Active Substance: ACETAMINOPHEN
  3. MELATONIN [Concomitant]
     Active Substance: MELATONIN

REACTIONS (6)
  - Gait inability [None]
  - Insomnia [None]
  - Arthralgia [None]
  - Collagen disorder [None]
  - Histamine level increased [None]
  - Panic attack [None]

NARRATIVE: CASE EVENT DATE: 20171127
